FAERS Safety Report 8921700 (Version 2)
Quarter: 2013Q1

REPORT INFORMATION
  Report Type: Spontaneous
  Country: US (occurrence: US)
  Receive Date: 20121121
  Receipt Date: 20130227
  Transmission Date: 20140127
  Serious: Yes (Hospitalization, Other)
  Sender: FDA-Public Use
  Company Number: US-JNJFOC-20121108920

PATIENT
  Age: 73 None
  Sex: Male
  Weight: 127.01 kg

DRUGS (14)
  1. XARELTO [Suspect]
     Indication: THROMBOSIS PROPHYLAXIS
     Route: 048
     Dates: start: 20121107, end: 20121112
  2. XARELTO [Suspect]
     Indication: THROMBOSIS PROPHYLAXIS
     Route: 048
     Dates: start: 20121111, end: 201211
  3. XARELTO [Suspect]
     Indication: KNEE ARTHROPLASTY
     Route: 048
     Dates: start: 20121107, end: 20121112
  4. XARELTO [Suspect]
     Indication: KNEE ARTHROPLASTY
     Route: 048
     Dates: start: 20121111, end: 201211
  5. TYLENOL [Concomitant]
     Indication: PAIN
     Dosage: PRN
     Route: 065
  6. FLUOXETINE [Concomitant]
     Indication: ANTIDEPRESSANT THERAPY
     Route: 048
  7. HYDROCHLOROTHIAZIDE [Concomitant]
     Indication: DIURETIC THERAPY
     Route: 048
  8. LISINOPRIL [Concomitant]
     Indication: HYPERTENSION
     Route: 048
  9. SPIRIVA [Concomitant]
     Indication: CHRONIC OBSTRUCTIVE PULMONARY DISEASE
     Route: 055
  10. ALPRAZOLAM [Concomitant]
     Indication: ANXIETY
     Dosage: EVERY 4 HOURS AS NEEDED
     Route: 065
  11. HYDROCODONE/APAP [Concomitant]
     Indication: PAIN
     Dosage: 10/325 MG Q4H PRN
     Route: 065
  12. FERROUS SULFATE [Concomitant]
     Indication: IRON DEFICIENCY
     Route: 065
     Dates: start: 20121112
  13. VERAMYST NASAL SPRAY [Concomitant]
     Indication: RHINITIS ALLERGIC
     Route: 065
  14. DOCUSATE [Concomitant]
     Indication: ABNORMAL FAECES
     Route: 048

REACTIONS (2)
  - Deep vein thrombosis [Recovered/Resolved]
  - Procedural pain [Unknown]
